FAERS Safety Report 6226365-6 (Version None)
Quarter: 2009Q2

REPORT INFORMATION
  Report Type: 
  Country: None (occurrence: None)
  Receive Date: 20090612
  Receipt Date: 20090320
  Transmission Date: 20091009
  Serious: Yes (Hospitalization)
  Sender: FDA-Public Use
  Company Number: GB-JNJFOC-20090603432

PATIENT
  Age: 33 Year
  Sex: Female

DRUGS (1)
  1. GRISEOFULVIN [Suspect]
     Indication: TRICHOPHYTOSIS
     Route: 048

REACTIONS (1)
  - SYSTEMIC LUPUS ERYTHEMATOSUS [None]
